FAERS Safety Report 18974332 (Version 5)
Quarter: 2021Q3

REPORT INFORMATION
  Report Type: Report from Study
  Country: US (occurrence: US)
  Receive Date: 20210305
  Receipt Date: 20210906
  Transmission Date: 20211014
  Serious: No
  Sender: FDA-Public Use
  Company Number: NVSC2021US051670

PATIENT
  Sex: Male

DRUGS (1)
  1. ENTRESTO [Suspect]
     Active Substance: SACUBITRIL\VALSARTAN
     Indication: PRODUCT USED FOR UNKNOWN INDICATION
     Dosage: 200 MG, BID (97/103MG)
     Route: 048
     Dates: start: 202009

REACTIONS (6)
  - Loss of libido [Unknown]
  - Fear of death [Unknown]
  - Memory impairment [Unknown]
  - Ejection fraction decreased [Not Recovered/Not Resolved]
  - Dry mouth [Unknown]
  - Product dose omission issue [Unknown]
